FAERS Safety Report 7901074-3 (Version None)
Quarter: 2011Q4

REPORT INFORMATION
  Report Type: 
  Country: None (occurrence: None)
  Receive Date: 20111108
  Receipt Date: 20111102
  Transmission Date: 20120403
  Serious: Yes (Other)
  Sender: FDA-Public Use
  Company Number: US-ELI_LILLY_AND_COMPANY-US201111001301

PATIENT
  Age: 37 Year
  Sex: Male

DRUGS (1)
  1. CIALIS [Suspect]

REACTIONS (2)
  - NERVE INJURY [None]
  - PRIAPISM [None]
